FAERS Safety Report 16217929 (Version 2)
Quarter: 2019Q2

REPORT INFORMATION
  Report Type: Spontaneous
  Country: JP (occurrence: JP)
  Receive Date: 20190419
  Receipt Date: 20190516
  Transmission Date: 20190711
  Serious: Yes (Other)
  Sender: FDA-Public Use
  Company Number: JP-CELGENEUS-JPN-20190405064

PATIENT
  Age: 80 Year
  Sex: Female

DRUGS (3)
  1. MARDUOX [Concomitant]
     Active Substance: BETAMETHASONE BUTYRATE PROPIONATE\MAXACALCITOL
     Indication: PSORIASIS
     Dosage: UNKNOWN
     Route: 061
  2. MYSER [Concomitant]
     Indication: PSORIASIS
     Dosage: UNKNOWN
     Route: 061
  3. OTEZLA [Suspect]
     Active Substance: APREMILAST
     Indication: PSORIASIS
     Dosage: 1 TABLET
     Route: 048
     Dates: start: 20190405, end: 20190412

REACTIONS (1)
  - Hypotension [Recovered/Resolved]

NARRATIVE: CASE EVENT DATE: 20190412
